FAERS Safety Report 9189303 (Version 1)
Quarter: 2013Q1

REPORT INFORMATION
  Report Type: Spontaneous
  Country: BE (occurrence: BE)
  Receive Date: 20130326
  Receipt Date: 20130326
  Transmission Date: 20140127
  Serious: Yes (Other)
  Sender: FDA-Public Use
  Company Number: BE-CELGENEUS-013-21880-13032149

PATIENT
  Sex: 0

DRUGS (1)
  1. REVLIMID [Suspect]
     Indication: PRODUCT USED FOR UNKNOWN INDICATION
     Route: 048
     Dates: start: 20100607, end: 20120313

REACTIONS (2)
  - Aortic stenosis [Unknown]
  - Cardiogenic shock [Unknown]
